FAERS Safety Report 8112962-X (Version None)
Quarter: 2012Q1

REPORT INFORMATION
  Report Type: 
  Country: None (occurrence: None)
  Receive Date: 20120203
  Receipt Date: 20120123
  Transmission Date: 20120608
  Serious: Yes (Hospitalization)
  Sender: FDA-Public Use
  Company Number: US-MERCK-1111USA03824

PATIENT
  Age: 70 Year
  Sex: Female

DRUGS (1)
  1. COZAAR [Suspect]
     Indication: HYPERTENSION
     Route: 048

REACTIONS (4)
  - CEREBRAL HAEMORRHAGE [None]
  - VERTIGO [None]
  - FALL [None]
  - CLAVICLE FRACTURE [None]
